FAERS Safety Report 16890532 (Version 1)
Quarter: 2019Q4

REPORT INFORMATION
  Report Type: Spontaneous
  Country: CA (occurrence: CA)
  Receive Date: 20191005
  Receipt Date: 20191005
  Transmission Date: 20200122
  Serious: No
  Sender: FDA-Public Use
  Company Number: None

PATIENT
  Age: 47 Year
  Sex: Male

DRUGS (1)
  1. NEUPRO [Suspect]
     Active Substance: ROTIGOTINE
     Indication: PARKINSON^S DISEASE
     Dosage: ?          OTHER STRENGTH:PATCH;?
     Route: 062
     Dates: start: 20170101, end: 20190109

REACTIONS (10)
  - Theft [None]
  - Partner stress [None]
  - Anxiety [None]
  - Loss of employment [None]
  - General physical health deterioration [None]
  - Economic problem [None]
  - Suicide attempt [None]
  - Depression [None]
  - Aggression [None]
  - Gambling disorder [None]
